FAERS Safety Report 19648868 (Version 2)
Quarter: 2021Q3

REPORT INFORMATION
  Report Type: Spontaneous
  Country: US (occurrence: US)
  Receive Date: 20210803
  Receipt Date: 20210809
  Transmission Date: 20211014
  Serious: No
  Sender: FDA-Public Use
  Company Number: US-NOVOPROD-832825

PATIENT
  Sex: Female

DRUGS (1)
  1. SAXENDA [Suspect]
     Active Substance: LIRAGLUTIDE
     Indication: PRODUCT USED FOR UNKNOWN INDICATION
     Dosage: UNK
     Route: 058
     Dates: start: 20210722, end: 202107

REACTIONS (8)
  - Increased appetite [Unknown]
  - Injection site pain [Unknown]
  - Headache [Unknown]
  - Injection site bruising [Not Recovered/Not Resolved]
  - Chest pain [Recovered/Resolved]
  - Feeling jittery [Unknown]
  - Dizziness [Unknown]
  - Injection site hypoaesthesia [Unknown]

NARRATIVE: CASE EVENT DATE: 2021
